FAERS Safety Report 25051416 (Version 3)
Quarter: 2025Q1

REPORT INFORMATION
  Report Type: Report from Study
  Country: BE (occurrence: BE)
  Receive Date: 20250307
  Receipt Date: 20250326
  Transmission Date: 20250409
  Serious: Yes (Other)
  Sender: UCB
  Company Number: BE-UCBSA-2025013046

PATIENT
  Age: 61 Year
  Sex: Female
  Weight: 78 kg

DRUGS (9)
  1. BIMEKIZUMAB [Suspect]
     Active Substance: BIMEKIZUMAB
     Indication: Psoriatic arthropathy
     Dosage: 160 MILLIGRAM, MONTHLY (QM)
     Route: 058
     Dates: start: 20240904, end: 20250107
  2. ASPIRIN [Concomitant]
     Active Substance: ASPIRIN
     Indication: Prophylaxis
     Dosage: 80 MILLIGRAM, ONCE DAILY (QD)
     Dates: start: 2014
  3. PANTOPRAZOLE [Concomitant]
     Active Substance: PANTOPRAZOLE
     Indication: Prophylaxis
     Dosage: 20 MILLIGRAM, 2X/DAY (BID)
     Dates: start: 2007
  4. TIBOLINIA [Concomitant]
     Indication: Menopause
     Dosage: 2.5 MILLIGRAM, ONCE DAILY (QD)
     Dates: start: 2010
  5. PAROXETINE PROLEPHA [Concomitant]
     Indication: Depressed mood
     Dosage: 20 MILLIGRAM, ONCE DAILY (QD)
     Dates: start: 2001
  6. FLUTICASONE FUROATE\VILANTEROL TRIFENATATE [Concomitant]
     Active Substance: FLUTICASONE FUROATE\VILANTEROL TRIFENATATE
     Indication: Chronic obstructive pulmonary disease
     Dosage: 1, PUFF, ONCE DAILY (QD), AEROSOL
     Dates: start: 2023
  7. OXYCODONE [Concomitant]
     Active Substance: OXYCODONE
     Indication: Spinal osteoarthritis
     Dates: start: 2007
  8. FENTANYL [Concomitant]
     Active Substance: FENTANYL
     Indication: Spinal osteoarthritis
     Dosage: 100 MICROGRAM, EV 3 DAYS, PATCH
     Dates: start: 2008
  9. DOXYCYCLINE [Concomitant]
     Active Substance: DOXYCYCLINE
     Indication: Upper respiratory tract infection
     Dosage: 100 MILLIGRAM, ONCE DAILY (QD)
     Dates: start: 20241121

REACTIONS (3)
  - Major depression [Not Recovered/Not Resolved]
  - Periarthritis [Not Recovered/Not Resolved]
  - Rash pruritic [Not Recovered/Not Resolved]

NARRATIVE: CASE EVENT DATE: 20250101
